FAERS Safety Report 24392922 (Version 1)
Quarter: 2024Q4

REPORT INFORMATION
  Report Type: Spontaneous
  Country: TH (occurrence: TH)
  Receive Date: 20241003
  Receipt Date: 20241003
  Transmission Date: 20250114
  Serious: Yes (Other)
  Sender: NOVARTIS
  Company Number: TH-002147023-NVSC2024TH191467

PATIENT
  Age: 65 Year
  Sex: Male

DRUGS (9)
  1. TAFINLAR [Suspect]
     Active Substance: DABRAFENIB MESYLATE
     Indication: Product used for unknown indication
     Dosage: 150 MG, BID
     Route: 048
     Dates: start: 202203
  2. TAFINLAR [Suspect]
     Active Substance: DABRAFENIB MESYLATE
     Dosage: 75 MG, BID
     Route: 048
     Dates: start: 202211, end: 202307
  3. TAFINLAR [Suspect]
     Active Substance: DABRAFENIB MESYLATE
     Dosage: 75 MG, BID
     Route: 065
     Dates: start: 202312, end: 202403
  4. MEKINIST [Suspect]
     Active Substance: TRAMETINIB DIMETHYL SULFOXIDE
     Indication: Product used for unknown indication
     Dosage: 2 MG, QD
     Route: 048
     Dates: start: 202203
  5. MEKINIST [Suspect]
     Active Substance: TRAMETINIB DIMETHYL SULFOXIDE
     Dosage: 2 MG (AD)
     Route: 048
     Dates: start: 202211, end: 202307
  6. MEKINIST [Suspect]
     Active Substance: TRAMETINIB DIMETHYL SULFOXIDE
     Dosage: 2 MG (AD)
     Route: 048
     Dates: start: 202312, end: 202403
  7. LENVATINIB [Concomitant]
     Active Substance: LENVATINIB
     Indication: Product used for unknown indication
     Dosage: 10 MG, QD
     Route: 065
     Dates: start: 20210906
  8. LENVATINIB [Concomitant]
     Active Substance: LENVATINIB
     Dosage: 14 MG
     Route: 065
     Dates: start: 20210920
  9. SORAFENIB [Concomitant]
     Active Substance: SORAFENIB
     Indication: Product used for unknown indication
     Dosage: 400 MG, QD
     Route: 065
     Dates: start: 202309, end: 202310

REACTIONS (12)
  - Metastases to lung [Unknown]
  - Metastases to bone [Unknown]
  - Upper airway obstruction [Unknown]
  - Pneumonia [Unknown]
  - Respiratory failure [Unknown]
  - Neck pain [Unknown]
  - Osteolysis [Unknown]
  - Swelling face [Unknown]
  - Disease progression [Unknown]
  - Muscle mass [Unknown]
  - Jugular vein thrombosis [Unknown]
  - Neuronal ceroid lipofuscinosis [Unknown]

NARRATIVE: CASE EVENT DATE: 20230701
